FAERS Safety Report 6328144-8 (Version None)
Quarter: 2009Q3

REPORT INFORMATION
  Report Type: 
  Country: None (occurrence: None)
  Receive Date: 20090825
  Receipt Date: 20090115
  Transmission Date: 20100115
  Serious: No
  Sender: FDA-Public Use
  Company Number: US-ABBOTT-09P-163-0498413-00

PATIENT
  Sex: Female

DRUGS (2)
  1. SYNTHROID [Suspect]
     Indication: HYPOTHYROIDISM
     Dates: start: 20081210
  2. SYNTHROID [Suspect]
     Dates: start: 20090106

REACTIONS (8)
  - ANXIETY [None]
  - FATIGUE [None]
  - HEADACHE [None]
  - INSOMNIA [None]
  - PAIN IN JAW [None]
  - PALPITATIONS [None]
  - POOR QUALITY SLEEP [None]
  - SLEEP DISORDER [None]
